FAERS Safety Report 10356339 (Version 1)
Quarter: 2014Q3

REPORT INFORMATION
  Report Type: Spontaneous
  Country: US (occurrence: None)
  Receive Date: 20140730
  Receipt Date: 20140730
  Transmission Date: 20150326
  Serious: Yes (Hospitalization, Other)
  Sender: FDA-Public Use
  Company Number: None

PATIENT
  Sex: Female
  Weight: 89.36 kg

DRUGS (2)
  1. FENTANYL TRANSDERMAL SYSTEM [Suspect]
     Active Substance: FENTANYL
     Indication: VERTEBROPLASTY
     Dosage: 72 HOURS PATCH OF FENTANYL ?PAIN RELIEVER AFTER VERTEBROPLASTY ?TWO 1/2 YRS. AGO ??T
  2. FENTANYL TRANSDERMAL SYSTEM [Suspect]
     Active Substance: FENTANYL
     Indication: PAIN MANAGEMENT
     Dosage: 72 HOURS PATCH OF FENTANYL ?PAIN RELIEVER AFTER VERTEBROPLASTY ?TWO 1/2 YRS. AGO ??T

REACTIONS (4)
  - Cardiac failure congestive [None]
  - Renal failure [None]
  - Feeling abnormal [None]
  - Crying [None]
